FAERS Safety Report 14227731 (Version 2)
Quarter: 2018Q2

REPORT INFORMATION
  Report Type: Spontaneous
  Country: PL (occurrence: PL)
  Receive Date: 20171127
  Receipt Date: 20180423
  Transmission Date: 20180711
  Serious: Yes (Death, Hospitalization)
  Sender: FDA-Public Use
  Company Number: PL-EXELIXIS-CABO-17011404

PATIENT
  Age: 53 Year
  Sex: Male

DRUGS (2)
  1. CABOMETYX [Suspect]
     Active Substance: CABOZANTINIB S-MALATE
     Dosage: 40 MG, QD
     Route: 048
     Dates: start: 2017, end: 20171108
  2. CABOMETYX [Suspect]
     Active Substance: CABOZANTINIB S-MALATE
     Indication: RENAL CELL CARCINOMA STAGE IV
     Dosage: 60 MG, QD
     Route: 048
     Dates: start: 20170328, end: 2017

REACTIONS (13)
  - Hypopituitarism [Not Recovered/Not Resolved]
  - Asthenia [Unknown]
  - Dysphonia [Unknown]
  - Bone pain [Unknown]
  - Hepatotoxicity [Unknown]
  - Dyspepsia [Unknown]
  - Skin toxicity [Unknown]
  - Palmar-plantar erythrodysaesthesia syndrome [Unknown]
  - Hypothyroidism [Unknown]
  - Diarrhoea [Unknown]
  - Malignant neoplasm progression [Fatal]
  - Breath sounds abnormal [Not Recovered/Not Resolved]
  - Hair colour changes [Unknown]
